FAERS Safety Report 11352521 (Version 1)
Quarter: 2015Q3

REPORT INFORMATION
  Report Type: Spontaneous
  Country: US (occurrence: US)
  Receive Date: 20150807
  Receipt Date: 20150807
  Transmission Date: 20151125
  Serious: No
  Sender: FDA-Public Use
  Company Number: US-JNJFOC-20141213089

PATIENT
  Sex: Female

DRUGS (2)
  1. MENS ROGAINE EXTRA STRENGTH [Suspect]
     Active Substance: MINOXIDIL
     Indication: PRODUCT USED FOR UNKNOWN INDICATION
     Route: 065
  2. MENS ROGAINE EXTRA STRENGTH [Suspect]
     Active Substance: MINOXIDIL
     Route: 065

REACTIONS (6)
  - Rash [Not Recovered/Not Resolved]
  - Wrong patient received medication [Unknown]
  - Hypersensitivity [Unknown]
  - Application site irritation [Not Recovered/Not Resolved]
  - Product quality issue [Unknown]
  - Haemorrhage [Not Recovered/Not Resolved]
